FAERS Safety Report 9750819 (Version 1)
Quarter: 2013Q4

REPORT INFORMATION
  Report Type: Spontaneous
  Country: US (occurrence: US)
  Receive Date: 20131212
  Receipt Date: 20131212
  Transmission Date: 20140711
  Serious: No
  Sender: FDA-Public Use
  Company Number: US-BIOGENIDEC-2013BI100671

PATIENT
  Sex: Female

DRUGS (9)
  1. TECFIDERA [Suspect]
     Indication: MULTIPLE SCLEROSIS
     Route: 048
     Dates: start: 20130916
  2. PLAQUENIL [Concomitant]
  3. PAXIL [Concomitant]
  4. VICODIN [Concomitant]
  5. ALLEGRA [Concomitant]
  6. LAMICTAL [Concomitant]
  7. LEVOTHYROXINE [Concomitant]
  8. VITAMIN D [Concomitant]
  9. INDERAL [Concomitant]

REACTIONS (2)
  - Flushing [Unknown]
  - Abdominal discomfort [Unknown]
